FAERS Safety Report 6060083-2 (Version None)
Quarter: 2009Q1

REPORT INFORMATION
  Report Type: 
  Country: None (occurrence: None)
  Receive Date: 20090130
  Receipt Date: 20090120
  Transmission Date: 20090719
  Serious: Yes (Other)
  Sender: FDA-Public Use
  Company Number: US-ELI_LILLY_AND_COMPANY-US200812003677

PATIENT
  Sex: Female
  Weight: 86.395 kg

DRUGS (15)
  1. CYMBALTA [Suspect]
     Dosage: 30 MG, DAILY (1/D)
  2. CYMBALTA [Suspect]
     Dosage: 60 MG, UNK
  3. MIRAPEX [Concomitant]
  4. OXYCONTIN [Concomitant]
     Dosage: 5 MG, EACH EVENING
  5. WELLBUTRIN [Concomitant]
  6. ZOLOFT [Concomitant]
  7. VITAMIN B-12 [Concomitant]
     Dosage: 1000 MEQ, DAILY (1/D)
  8. VITAMIN D [Concomitant]
     Dosage: 50000 UNK, 2/W
  9. ZANTAC [Concomitant]
     Dosage: 150 MG, DAILY (1/D)
  10. ALLEGRA D /01367401/ [Concomitant]
     Dosage: UNK, DAILY (1/D)
  11. ARISTOCORT [Concomitant]
     Dosage: 0.025 %, OTHER
  12. SYNTHROID [Concomitant]
     Dosage: 225 UG, DAILY (1/D)
     Route: 048
  13. LORAZEPAM [Concomitant]
     Dosage: UNK, EACH EVENING
  14. PROVIGIL [Concomitant]
     Dosage: 200 MG, UNK
  15. FLUTICASONE [Concomitant]
     Dosage: 2 D/F, DAILY (1/D)

REACTIONS (5)
  - COORDINATION ABNORMAL [None]
  - DIZZINESS [None]
  - DRUG INTERACTION [None]
  - MUSCULAR WEAKNESS [None]
  - TREMOR [None]
